FAERS Safety Report 8030509-3 (Version None)
Quarter: 2012Q1

REPORT INFORMATION
  Report Type: 
  Country: None (occurrence: None)
  Receive Date: 20120109
  Receipt Date: 20120106
  Transmission Date: 20120608
  Serious: Yes (Other)
  Sender: FDA-Public Use
  Company Number: ES-ROCHE-1014302

PATIENT
  Age: 34 Year
  Sex: Female

DRUGS (2)
  1. GANCICLOVIR SODIUM [Suspect]
     Indication: CYTOMEGALOVIRUS INFECTION
     Route: 042
     Dates: start: 20110826, end: 20110906
  2. GANCICLOVIR SODIUM [Suspect]
     Route: 042
     Dates: start: 20110906

REACTIONS (2)
  - CYTOMEGALOVIRUS TEST POSITIVE [None]
  - DRUG INEFFECTIVE [None]
